FAERS Safety Report 8372750 (Version 2)
Quarter: 2013Q2

REPORT INFORMATION
  Report Type: Spontaneous
  Country: US (occurrence: None)
  Receive Date: 20111221
  Receipt Date: 20121227
  Transmission Date: 20140414
  Serious: Yes (Hospitalization)
  Sender: FDA-Public Use
  Company Number: PHHY2011US57678

PATIENT
  Age: 79 Year
  Sex: Female

DRUGS (2)
  1. EXJADE [Suspect]
     Indication: IRON OVERLOAD
     Dosage: 500 MG, Q96H, ORAL ; 500 MG DAILY, ORAL
     Route: 048
     Dates: start: 20071030
  2. EXJADE [Suspect]
     Indication: SICKLE CELL ANAEMIA
     Dosage: 500 MG, Q96H, ORAL ; 500 MG DAILY, ORAL
     Route: 048
     Dates: start: 20071030

REACTIONS (8)
  - DIARRHOEA [None]
  - ABDOMINAL DISTENSION [None]
  - Sickle cell anaemia with crisis [None]
  - Large intestinal haemorrhage [None]
  - Abdominal pain upper [None]
  - Muscle spasms [None]
  - Cardiac disorder [None]
  - Malaise [None]
